FAERS Safety Report 4394793-X (Version None)
Quarter: 2004Q3

REPORT INFORMATION
  Report Type: 
  Country: None (occurrence: None)
  Receive Date: 20040707
  Receipt Date: 20040623
  Transmission Date: 20050211
  Serious: Yes (Hospitalization)
  Sender: FDA-Public Use
  Company Number: MK200406-0204-1

PATIENT
  Age: 62 Year
  Sex: Female

DRUGS (2)
  1. PAMELOR [Suspect]
     Indication: DEPRESSION
     Dosage: 25MG, DAILY
     Dates: start: 20030201, end: 20030701
  2. EUTIROX [Concomitant]

REACTIONS (12)
  - ABDOMINAL PAIN [None]
  - BONE MARROW DEPRESSION [None]
  - DELUSION [None]
  - DIARRHOEA [None]
  - DRUG INEFFECTIVE [None]
  - GASTRITIS [None]
  - HEADACHE [None]
  - MARKEDLY REDUCED DIETARY INTAKE [None]
  - NAUSEA [None]
  - PETECHIAE [None]
  - THROMBOCYTOPENIA [None]
  - VOMITING [None]
